FAERS Safety Report 12395535 (Version 1)
Quarter: 2016Q2

REPORT INFORMATION
  Report Type: Spontaneous
  Country: KR (occurrence: KR)
  Receive Date: 20160523
  Receipt Date: 20160523
  Transmission Date: 20160815
  Serious: Yes (Death)
  Sender: FDA-Public Use
  Company Number: KR-MYLANLABS-2016M1021224

PATIENT

DRUGS (2)
  1. DOCETAXEL. [Suspect]
     Active Substance: DOCETAXEL
     Indication: OSTEOSARCOMA
     Dosage: 100MG/M2, OVER 90 MIN ON DAY 8, FOR 3 WEEKS
     Route: 042
  2. GEMCITABINE [Suspect]
     Active Substance: GEMCITABINE\GEMCITABINE HYDROCHLORIDE
     Indication: OSTEOSARCOMA
     Dosage: 900MG/M2, OVER 90 MIN ON DAY 1 AND DAY 8
     Route: 042

REACTIONS (3)
  - Pleural effusion [Fatal]
  - Pneumonia [Fatal]
  - Respiratory failure [Fatal]
